FAERS Safety Report 15171237 (Version 1)
Quarter: 2018Q3

REPORT INFORMATION
  Report Type: Spontaneous
  Country: US (occurrence: US)
  Receive Date: 20180720
  Receipt Date: 20180720
  Transmission Date: 20181010
  Serious: No
  Sender: FDA-Public Use
  Company Number: US-GLAXOSMITHKLINE-US2018127331

PATIENT
  Age: 77 Year
  Sex: Male

DRUGS (1)
  1. FLONASE [Suspect]
     Active Substance: FLUTICASONE PROPIONATE
     Indication: TINNITUS
     Route: 045
     Dates: start: 20180321

REACTIONS (4)
  - Weight decreased [Unknown]
  - Off label use [Unknown]
  - Decreased appetite [Unknown]
  - Asthenia [Unknown]
